FAERS Safety Report 4648737-3 (Version None)
Quarter: 2005Q2

REPORT INFORMATION
  Report Type: 
  Country: None (occurrence: None)
  Receive Date: 20050427
  Receipt Date: 20050408
  Transmission Date: 20051028
  Serious: Yes (Hospitalization)
  Sender: FDA-Public Use
  Company Number: JP_050306033

PATIENT
  Age: 32 Year
  Sex: Male
  Weight: 85 kg

DRUGS (5)
  1. ONCOVIN [Suspect]
     Indication: PRIMARY MEDIASTINAL LARGE B-CELL LYMPHOMA STAGE IV
     Dosage: 2 MG'; OTHER
     Route: 050
     Dates: start: 20041228, end: 20050210
  2. RITUXAN [Concomitant]
  3. CYCLOPHOSPHAMIDE [Concomitant]
  4. ADRIAMYCIN PFS [Concomitant]
  5. PREDNISOLONE [Concomitant]

REACTIONS (4)
  - ATRIAL FIBRILLATION [None]
  - INFLUENZA [None]
  - PNEUMONITIS [None]
  - VENTRICULAR EXTRASYSTOLES [None]
